FAERS Safety Report 5651030-3 (Version None)
Quarter: 2008Q1

REPORT INFORMATION
  Report Type: 
  Country: None (occurrence: None)
  Receive Date: 20080305
  Receipt Date: 20080227
  Transmission Date: 20080703
  Serious: Yes (Other)
  Sender: FDA-Public Use
  Company Number: A0712239A

PATIENT
  Age: 59 Year
  Sex: Female

DRUGS (7)
  1. FLONASE [Suspect]
     Indication: RHINITIS
     Route: 045
     Dates: start: 20030101, end: 20070101
  2. FLONASE [Suspect]
     Dosage: 50MCG PER DAY
     Route: 045
     Dates: start: 20070101, end: 20070101
  3. COMBIVENT [Concomitant]
  4. FLOVENT [Concomitant]
  5. ATENOLOL [Concomitant]
  6. NITROGLYCERIN [Concomitant]
  7. ISOSORBID [Concomitant]

REACTIONS (2)
  - CATARACT [None]
  - VISUAL ACUITY REDUCED [None]
